FAERS Safety Report 14327648 (Version 1)
Quarter: 2017Q4

REPORT INFORMATION
  Report Type: Spontaneous
  Country: NL (occurrence: NL)
  Receive Date: 20171227
  Receipt Date: 20171227
  Transmission Date: 20180321
  Serious: Yes (Hospitalization)
  Sender: FDA-Public Use
  Company Number: NL-AUROBINDO-AUR-APL-2017-47166

PATIENT
  Age: 35 Year
  Sex: Female
  Weight: 95 kg

DRUGS (1)
  1. CO-TRIMOXAZOL 960 MG [Suspect]
     Active Substance: SULFAMETHOXAZOLE\TRIMETHOPRIM
     Indication: BACTERIAL INFECTION
     Dosage: 2 X DAAGS 1
     Dates: start: 20170218, end: 20170218

REACTIONS (2)
  - Dyspnoea [Recovered/Resolved]
  - Syncope [Recovered/Resolved]

NARRATIVE: CASE EVENT DATE: 20170218
